FAERS Safety Report 8112158-1 (Version None)
Quarter: 2012Q1

REPORT INFORMATION
  Report Type: 
  Country: None (occurrence: None)
  Receive Date: 20120203
  Receipt Date: 20120201
  Transmission Date: 20120608
  Serious: Yes (Death, Hospitalization, Disabling)
  Sender: FDA-Public Use
  Company Number: NL-SANOFI-AVENTIS-2012SA006891

PATIENT
  Age: 56 Year
  Sex: Female
  Weight: 88.6 kg

DRUGS (10)
  1. DOCETAXEL [Suspect]
     Indication: NON-SMALL CELL LUNG CANCER STAGE IV
     Route: 042
     Dates: start: 20120106, end: 20120106
  2. DEXAMETHASONE [Concomitant]
     Dates: start: 20120103
  3. THYRAX [Concomitant]
     Indication: HYPOTHYROIDISM
     Dates: start: 20100101
  4. PIROXICAM [Concomitant]
     Indication: PROPHYLAXIS
     Dates: start: 20111227
  5. BECLOMETHASONE W/FENOTEROL [Concomitant]
     Indication: PROPHYLAXIS
  6. NADROPARIN CALCIUM [Concomitant]
     Indication: THROMBOSIS PROPHYLAXIS
     Dates: start: 20111227
  7. NAPROXEN [Concomitant]
     Indication: CHEST PAIN
     Dates: start: 20120103, end: 20120105
  8. BLINDED THERAPY [Suspect]
     Indication: NON-SMALL CELL LUNG CANCER STAGE IV
     Dosage: OVER 60 MINUTES
     Route: 042
     Dates: start: 20120106, end: 20120106
  9. OXAZEPAM [Concomitant]
     Dates: start: 20111223
  10. ESOMEPRAZOLE MAGNESIUM [Concomitant]
     Indication: PROPHYLAXIS
     Dates: start: 20010101

REACTIONS (2)
  - CEREBROVASCULAR ACCIDENT [None]
  - RETINAL VEIN THROMBOSIS [None]
